FAERS Safety Report 8413250-4 (Version None)
Quarter: 2012Q2

REPORT INFORMATION
  Report Type: 
  Country: None (occurrence: None)
  Receive Date: 20120605
  Receipt Date: 20120521
  Transmission Date: 20120825
  Serious: Yes (Hospitalization, Other)
  Sender: FDA-Public Use
  Company Number: JP-AMGEN-JPNSP2012032821

PATIENT
  Age: 58 Year
  Sex: Male

DRUGS (5)
  1. BEVACIZUMAB [Concomitant]
  2. VECTIBIX [Suspect]
     Indication: COLON CANCER
     Dosage: UNK
  3. LEUCOVORIN CALCIUM [Concomitant]
  4. IRINOTECAN HCL [Suspect]
     Indication: COLON CANCER
  5. FLUOROURACIL [Concomitant]

REACTIONS (5)
  - HYPOXIA [None]
  - DYSPNOEA [None]
  - INTERSTITIAL LUNG DISEASE [None]
  - CHEST X-RAY ABNORMAL [None]
  - C-REACTIVE PROTEIN INCREASED [None]
